FAERS Safety Report 23325616 (Version 1)
Quarter: 2023Q4

REPORT INFORMATION
  Report Type: Report from Study
  Country: TW (occurrence: TW)
  Receive Date: 20231221
  Receipt Date: 20231221
  Transmission Date: 20240110
  Serious: Yes (Hospitalization)
  Sender: FDA-Public Use
  Company Number: TW-ABBVIE-5551144

PATIENT
  Sex: Female
  Weight: 75 kg

DRUGS (3)
  1. HUMIRA [Suspect]
     Active Substance: ADALIMUMAB
     Indication: Ankylosing spondylitis
     Route: 058
     Dates: start: 20231019
  2. AMINO ACIDS\DEXTROSE\ELECTROLYTES NOS\VITAMINS [Concomitant]
     Active Substance: AMINO ACIDS\DEXTROSE\ELECTROLYTES NOS\VITAMINS
     Indication: Haematochezia
     Dates: start: 20231210, end: 20231210
  3. FAMOTIDINE [Concomitant]
     Active Substance: FAMOTIDINE
     Indication: Haematochezia
     Dates: start: 20231211, end: 20231212

REACTIONS (6)
  - Haematochezia [Recovered/Resolved]
  - Abdominal discomfort [Unknown]
  - Haematochezia [Unknown]
  - Anal polyp [Unknown]
  - Gastrointestinal haemorrhage [Unknown]
  - Faeces discoloured [Recovered/Resolved]

NARRATIVE: CASE EVENT DATE: 20230101
